FAERS Safety Report 18232149 (Version 1)
Quarter: 2020Q3

REPORT INFORMATION
  Report Type: Spontaneous
  Country: US (occurrence: US)
  Receive Date: 20200904
  Receipt Date: 20200904
  Transmission Date: 20201103
  Serious: No
  Sender: FDA-Public Use
  Company Number: US-TEVA-2020-US-1821994

PATIENT
  Sex: Female

DRUGS (18)
  1. LIDO?PRILO CAINE [Concomitant]
     Route: 065
  2. MAGNESIUM 250 MG [Concomitant]
     Route: 065
  3. CALCIUM 600 + VIT D [Concomitant]
     Route: 065
  4. VITAMIN D3 100000/G POWDER [Concomitant]
     Route: 065
  5. TRAMADOL HCL 50 MG [Concomitant]
     Active Substance: TRAMADOL HYDROCHLORIDE
     Route: 065
  6. AUSTEDO [Suspect]
     Active Substance: DEUTETRABENAZINE
     Indication: DYSKINESIA
     Dosage: 6 MILLIGRAM DAILY; WEEK 1, TITRATION
     Route: 048
     Dates: start: 20200821
  7. AUSTEDO [Suspect]
     Active Substance: DEUTETRABENAZINE
     Dosage: 12 MILLIGRAM DAILY;
     Route: 048
  8. REFRESH CELLUVISC 1 % DROPER [Concomitant]
     Route: 065
  9. ADVAIR DISKUS 250?50 MCG [Concomitant]
     Route: 065
  10. TIROSINT?SOL 50 MCG/ML [Concomitant]
     Route: 065
  11. OMEPRAZOLE 40 MG [Concomitant]
     Active Substance: OMEPRAZOLE
     Route: 065
  12. ROSUVASTATIN CALCIUM 5 MG [Concomitant]
     Active Substance: ROSUVASTATIN CALCIUM
     Route: 065
  13. TAMOXIFEN CITRATE 20 MG [Concomitant]
     Route: 065
  14. VOLTAREN ARTHRITIS PAIN [Concomitant]
     Active Substance: DICLOFENAC SODIUM
     Route: 065
  15. LOSARTAN?HYDROCHLOROTHIAZIDE [Concomitant]
     Active Substance: HYDROCHLOROTHIAZIDE\LOSARTAN
     Route: 065
  16. NORVASC [Concomitant]
     Active Substance: AMLODIPINE BESYLATE
     Route: 065
  17. DOXYCYCLINE HYCLATE 100 MG [Concomitant]
     Active Substance: DOXYCYCLINE HYCLATE
     Route: 065
  18. ALENDRONATE SODIUM 70 MG [Concomitant]
     Active Substance: ALENDRONATE SODIUM
     Route: 065

REACTIONS (1)
  - Pain [Unknown]
